FAERS Safety Report 18927579 (Version 8)
Quarter: 2022Q2

REPORT INFORMATION
  Report Type: Spontaneous
  Country: IT (occurrence: IT)
  Receive Date: 20210223
  Receipt Date: 20220418
  Transmission Date: 20220721
  Serious: Yes (Other)
  Sender: FDA-Public Use
  Company Number: IT-AMGEN-ITASP2021025793

PATIENT
  Age: 59 Year
  Sex: Female
  Weight: 82 kg

DRUGS (48)
  1. TRASTUZUMAB [Suspect]
     Active Substance: TRASTUZUMAB
     Indication: HER2 positive breast cancer
     Dosage: 560 MILLIGRAM, Q3WK
     Route: 041
     Dates: start: 20190314, end: 20190314
  2. TRASTUZUMAB [Suspect]
     Active Substance: TRASTUZUMAB
     Dosage: 130 MICROGRAM
     Route: 042
     Dates: start: 20190314, end: 20190610
  3. TRASTUZUMAB [Suspect]
     Active Substance: TRASTUZUMAB
     Dosage: 480 MILLIGRAM, Q3WK
     Route: 041
     Dates: start: 20190408, end: 20200311
  4. TRASTUZUMAB [Suspect]
     Active Substance: TRASTUZUMAB
     Dosage: 2 MICROGRAM/KILOGRAM, QWK
     Route: 041
     Dates: start: 20201215, end: 20210107
  5. TRASTUZUMAB [Suspect]
     Active Substance: TRASTUZUMAB
     Dosage: 6 MICROGRAM/KILOGRAM, Q3WK
     Route: 041
     Dates: start: 20210113
  6. IVABRADINE [Suspect]
     Active Substance: IVABRADINE
     Indication: Product used for unknown indication
     Dosage: 7.5 MILLIGRAM, BID
     Route: 048
     Dates: start: 20151118
  7. IVABRADINE [Suspect]
     Active Substance: IVABRADINE
     Dosage: UNK
     Route: 042
     Dates: start: 20151118
  8. IVABRADINE [Suspect]
     Active Substance: IVABRADINE
     Dosage: 840 MILLIGRAM, Q3WK
     Route: 042
     Dates: start: 20190314, end: 20190314
  9. IVABRADINE [Suspect]
     Active Substance: IVABRADINE
     Dosage: 130 MILLIGRAM
     Route: 042
     Dates: start: 20190314, end: 20190610
  10. IVABRADINE [Suspect]
     Active Substance: IVABRADINE
     Dosage: 25 MILLIGRAM, QD
     Route: 048
     Dates: start: 20190819, end: 20200422
  11. IVABRADINE [Suspect]
     Active Substance: IVABRADINE
     Dosage: 3.6 MICROGRAM/KILOGRAM, Q3WK
     Route: 048
     Dates: start: 20200506, end: 20201104
  12. IVABRADINE [Suspect]
     Active Substance: IVABRADINE
     Dosage: 25 MILLIGRAM, QD
     Route: 042
     Dates: start: 20201215, end: 20210107
  13. PACLITAXEL [Suspect]
     Active Substance: PACLITAXEL
     Indication: HER2 positive breast cancer
     Dosage: 130 MILLIGRAM
     Route: 042
     Dates: start: 20190314, end: 20190610
  14. PACLITAXEL [Suspect]
     Active Substance: PACLITAXEL
     Dosage: 90 MILLIGRAM
     Route: 042
     Dates: start: 20190617
  15. ADO-TRASTUZUMAB EMTANSINE [Suspect]
     Active Substance: ADO-TRASTUZUMAB EMTANSINE
     Indication: HER2 positive breast cancer
     Dosage: 3.6 MICROGRAM/KILOGRAM, Q3WK
     Route: 042
     Dates: start: 20200506, end: 20201104
  16. ADO-TRASTUZUMAB EMTANSINE [Suspect]
     Active Substance: ADO-TRASTUZUMAB EMTANSINE
     Dosage: 3.6 MICROGRAM/KILOGRAM, Q3WK
     Route: 042
     Dates: start: 20201104
  17. ADO-TRASTUZUMAB EMTANSINE [Suspect]
     Active Substance: ADO-TRASTUZUMAB EMTANSINE
     Dosage: 3.6 MICROGRAM/KILOGRAM, Q3WK
     Route: 042
     Dates: end: 20201215
  18. PERTUZUMAB [Suspect]
     Active Substance: PERTUZUMAB
     Indication: HER2 positive breast cancer
     Dosage: 840 MILLIGRAM, Q3WK
     Route: 042
     Dates: start: 20190314, end: 20190314
  19. PERTUZUMAB [Suspect]
     Active Substance: PERTUZUMAB
     Dosage: 840 MILLIGRAM, Q3WK
     Route: 042
     Dates: start: 20190408
  20. PERTUZUMAB [Suspect]
     Active Substance: PERTUZUMAB
     Dosage: 420 MILLIGRAM, Q3WK
     Route: 042
     Dates: start: 20190408
  21. EXEMESTANE [Suspect]
     Active Substance: EXEMESTANE
     Indication: HER2 positive breast cancer
     Dosage: 25 MILLIGRAM, QD
     Route: 048
     Dates: start: 20190819, end: 20200422
  22. EXEMESTANE [Suspect]
     Active Substance: EXEMESTANE
     Dosage: 25 MILLIGRAM, QD
     Route: 048
     Dates: start: 20200422
  23. VINORELBINE [Suspect]
     Active Substance: VINORELBINE TARTRATE
     Indication: HER2 positive breast cancer
     Dosage: 25 MILLIGRAM/SQ. METER
     Route: 042
     Dates: start: 20201215
  24. BISOPROLOL [Concomitant]
     Active Substance: BISOPROLOL
     Indication: Product used for unknown indication
     Dosage: 1.25 MILLIGRAM, AS NECESSARY
     Route: 048
     Dates: start: 20151118
  25. BISOPROLOL [Concomitant]
     Active Substance: BISOPROLOL
     Dosage: UNK
     Dates: start: 20200709
  26. CHOLECALCIFEROL [Concomitant]
     Active Substance: CHOLECALCIFEROL
     Indication: Product used for unknown indication
     Dosage: UNK, QMO
     Route: 048
  27. QUETIAPINE FUMARATE [Concomitant]
     Active Substance: QUETIAPINE FUMARATE
     Indication: Product used for unknown indication
  28. URSODIOL [Concomitant]
     Active Substance: URSODIOL
     Indication: Product used for unknown indication
     Dosage: 450 MILLIGRAM, QD
     Route: 048
     Dates: start: 20200709, end: 20201125
  29. DEXAMETHASONE [Concomitant]
     Active Substance: DEXAMETHASONE
     Indication: Nausea
     Dosage: 8 MILLIGRAM
     Route: 048
     Dates: start: 20210823, end: 20210823
  30. DEXAMETHASONE [Concomitant]
     Active Substance: DEXAMETHASONE
     Dosage: 4 MILLIGRAM
     Route: 048
     Dates: start: 20210824, end: 20210829
  31. DEXAMETHASONE [Concomitant]
     Active Substance: DEXAMETHASONE
     Dosage: 2 MILLIGRAM
     Route: 048
     Dates: start: 20210830, end: 20210831
  32. CLARITHROMYCIN [Concomitant]
     Active Substance: CLARITHROMYCIN
     Dosage: 500 MILLIGRAM, QD
     Route: 048
     Dates: start: 202010, end: 202011
  33. CYMBALTA [Concomitant]
     Active Substance: DULOXETINE HYDROCHLORIDE
     Dosage: 30 MILLIGRAM
     Route: 048
     Dates: start: 20190610
  34. RANITIDINE [Concomitant]
     Active Substance: RANITIDINE
     Dosage: UNK, QWK
     Route: 042
     Dates: start: 20190314, end: 20190722
  35. HEPARIN SODIUM [Concomitant]
     Active Substance: HEPARIN SODIUM
     Dosage: UNK
     Route: 042
     Dates: start: 20190314, end: 20190722
  36. AMOXICILLIN [Concomitant]
     Active Substance: AMOXICILLIN
     Dosage: 1 GRAM, BID
     Route: 048
     Dates: start: 202010, end: 202011
  37. ALIZAPRIDE [Concomitant]
     Active Substance: ALIZAPRIDE
     Dosage: UNK, QWK
     Route: 042
     Dates: start: 20190502, end: 20190722
  38. ALIZAPRIDE [Concomitant]
     Active Substance: ALIZAPRIDE
     Dosage: 100 MILLIGRAM, QWK
     Route: 042
     Dates: start: 20201216
  39. CHLORPHENIRAMINE MALEATE [Concomitant]
     Active Substance: CHLORPHENIRAMINE MALEATE
     Dosage: UNK, QWK
     Route: 042
     Dates: start: 20190314, end: 20190722
  40. HYDROCORTISONE [Concomitant]
     Active Substance: HYDROCORTISONE
     Dosage: 250 MILLIGRAM, QWK
     Route: 042
     Dates: start: 20190314, end: 20190722
  41. ONDANSETRON [Concomitant]
     Active Substance: ONDANSETRON
     Dosage: 8 MILLIGRAM, QWK
     Route: 042
     Dates: start: 20190314, end: 20190424
  42. QUETIAPINE [Concomitant]
     Active Substance: QUETIAPINE
     Indication: Product used for unknown indication
     Dosage: 50 MILLIGRAM, QD
     Route: 048
  43. PYLERA [Concomitant]
     Active Substance: BISMUTH SUBCITRATE POTASSIUM\METRONIDAZOLE\TETRACYCLINE HYDROCHLORIDE
     Dosage: 3 DOSAGE FORM, QID
     Route: 048
     Dates: start: 20200422, end: 20200501
  44. PREDNISONE [Concomitant]
     Active Substance: PREDNISONE
     Dosage: 12.5 MILLIGRAM, QD
     Route: 048
     Dates: start: 20200709, end: 20200723
  45. ESOMEPRAZOLE [Concomitant]
     Active Substance: ESOMEPRAZOLE
     Indication: Oesophagitis
     Dosage: 40 MILLIGRAM, BID
     Route: 048
     Dates: start: 20200422, end: 20200501
  46. ESOMEPRAZOLE [Concomitant]
     Active Substance: ESOMEPRAZOLE
     Dosage: 40 MILLIGRAM, QD
     Route: 048
     Dates: start: 20200502, end: 20200701
  47. ESOMEPRAZOLE [Concomitant]
     Active Substance: ESOMEPRAZOLE
     Dosage: 20 MILLIGRAM, QD
     Route: 048
     Dates: start: 202010, end: 202011
  48. ESOMEPRAZOLE [Concomitant]
     Active Substance: ESOMEPRAZOLE
     Dosage: 20 MILLIGRAM, QOD
     Route: 048
     Dates: start: 202011, end: 202011

REACTIONS (2)
  - Neutropenia [Recovered/Resolved]
  - Off label use [Unknown]

NARRATIVE: CASE EVENT DATE: 20190314
